FAERS Safety Report 4579848-9 (Version None)
Quarter: 2005Q1

REPORT INFORMATION
  Report Type: 
  Country: None (occurrence: None)
  Receive Date: 20050214
  Receipt Date: 20050202
  Transmission Date: 20050727
  Serious: Yes (Disabling)
  Sender: FDA-Public Use
  Company Number: US-JNJFOC-20040505463

PATIENT
  Sex: Female
  Weight: 60.33 kg

DRUGS (9)
  1. TOPAMAX [Suspect]
     Dosage: 100 MG AT HS
     Dates: start: 20030811
  2. CELEXA [Concomitant]
     Dates: start: 20040317
  3. QUININE SULFATE [Concomitant]
  4. ANAPROX [Concomitant]
  5. NEURONTIN [Concomitant]
  6. DEPAKOTE [Concomitant]
  7. DEPAKOTE [Concomitant]
  8. DEPAKOTE [Concomitant]
  9. DEPAKOTE [Concomitant]

REACTIONS (36)
  - AGEUSIA [None]
  - ANOREXIA [None]
  - ANXIETY [None]
  - ASTHENIA [None]
  - BACK PAIN [None]
  - BALANCE DISORDER [None]
  - BLOOD AMYLASE INCREASED [None]
  - BLOOD CHOLESTEROL INCREASED [None]
  - CARPAL TUNNEL SYNDROME [None]
  - CHEST X-RAY ABNORMAL [None]
  - COUGH [None]
  - DECREASED APPETITE [None]
  - DEPRESSION [None]
  - DIARRHOEA [None]
  - DIZZINESS [None]
  - DYSGEUSIA [None]
  - DYSPNOEA [None]
  - FATIGUE [None]
  - FOOD AVERSION [None]
  - GASTRIC OUTLET OBSTRUCTION [None]
  - GASTRITIS [None]
  - HEADACHE [None]
  - INSOMNIA [None]
  - JOINT SWELLING [None]
  - LACRIMATION INCREASED [None]
  - LOW DENSITY LIPOPROTEIN INCREASED [None]
  - NEUTROPHIL COUNT ABNORMAL [None]
  - NEUTROPHIL COUNT INCREASED [None]
  - RASH [None]
  - SINUS DISORDER [None]
  - SOMNOLENCE [None]
  - SPINAL OSTEOARTHRITIS [None]
  - STRESS [None]
  - TREMOR [None]
  - WEIGHT DECREASED [None]
  - WHITE BLOOD CELL COUNT INCREASED [None]
